FAERS Safety Report 18221768 (Version 1)
Quarter: 2020Q3

REPORT INFORMATION
  Report Type: Spontaneous
  Country: US (occurrence: US)
  Receive Date: 20200901
  Receipt Date: 20200901
  Transmission Date: 20201103
  Serious: No
  Sender: FDA-Public Use
  Company Number: None

PATIENT
  Age: 84 Year
  Sex: Female
  Weight: 73 kg

DRUGS (9)
  1. CARVEDILOL 12.5 MG [Concomitant]
     Active Substance: CARVEDILOL
  2. CLONAZEPAM 1MG [Concomitant]
     Active Substance: CLONAZEPAM
  3. ONDANSETRON 4MG [Concomitant]
     Active Substance: ONDANSETRON
  4. BENICAR [Concomitant]
     Active Substance: OLMESARTAN MEDOXOMIL
  5. SILVADENE 1% [Concomitant]
  6. CAPECITABINE. [Suspect]
     Active Substance: CAPECITABINE
     Indication: OESOPHAGEAL CARCINOMA
     Route: 048
     Dates: start: 20200818
  7. SYNTHROID [Concomitant]
     Active Substance: LEVOTHYROXINE SODIUM
  8. TESSALON PERLES 100 MG [Concomitant]
  9. NORCO 5?325MG [Concomitant]

REACTIONS (1)
  - Dysuria [None]

NARRATIVE: CASE EVENT DATE: 20200818
